FAERS Safety Report 5152300-8 (Version None)
Quarter: 2006Q4

REPORT INFORMATION
  Report Type: 
  Country: None (occurrence: None)
  Receive Date: 20061116
  Receipt Date: 20061103
  Transmission Date: 20070319
  Serious: Yes (Other)
  Sender: FDA-Public Use
  Company Number: CA-AVENTIS-200621519GDDC

PATIENT

DRUGS (2)
  1. FLAGYL [Suspect]
  2. PAROXETINE HCL [Concomitant]

REACTIONS (3)
  - CONVULSION [None]
  - HYPOAESTHESIA [None]
  - NECK PAIN [None]
